FAERS Safety Report 7602219-5 (Version None)
Quarter: 2011Q3

REPORT INFORMATION
  Report Type: 
  Country: None (occurrence: None)
  Receive Date: 20110711
  Receipt Date: 20110630
  Transmission Date: 20111222
  Serious: Yes (Hospitalization, Other)
  Sender: FDA-Public Use
  Company Number: US-ASTRAZENECA-2011SE18909

PATIENT
  Age: 66 Year
  Sex: Female

DRUGS (1)
  1. CRESTOR [Suspect]
     Route: 048

REACTIONS (4)
  - ORAL PAIN [None]
  - AMNESIA [None]
  - CEREBROVASCULAR ACCIDENT [None]
  - ARTERIAL REPAIR [None]
